FAERS Safety Report 24871065 (Version 1)
Quarter: 2025Q1

REPORT INFORMATION
  Report Type: Spontaneous
  Country: US (occurrence: US)
  Receive Date: 20250122
  Receipt Date: 20250122
  Transmission Date: 20250409
  Serious: Yes (Death, Hospitalization)
  Sender: JOHNSON AND JOHNSON
  Company Number: US-KENVUE-20250103268

PATIENT
  Age: 78 Year
  Sex: Female

DRUGS (3)
  1. ACETAMINOPHEN [Suspect]
     Active Substance: ACETAMINOPHEN
     Indication: Suicide attempt
  2. ALCOHOL [Suspect]
     Active Substance: ALCOHOL
     Indication: Suicide attempt
  3. LORAZEPAM [Suspect]
     Active Substance: LORAZEPAM
     Indication: Suicide attempt

REACTIONS (1)
  - Toxicity to various agents [Fatal]
